FAERS Safety Report 6516464-3 (Version None)
Quarter: 2009Q4

REPORT INFORMATION
  Report Type: 
  Country: None (occurrence: None)
  Receive Date: 20091223
  Receipt Date: 20091215
  Transmission Date: 20100525
  Serious: Yes (Hospitalization)
  Sender: FDA-Public Use
  Company Number: DE-TEVA-218088ISR

PATIENT
  Age: 48 Year
  Sex: Male

DRUGS (3)
  1. PHENYTOIN [Suspect]
     Indication: EPILEPSY
     Route: 048
  2. RAMIPRIL [Interacting]
     Route: 048
     Dates: start: 20091201
  3. LAMOTRIGINE [Concomitant]
     Indication: EPILEPSY
     Route: 048

REACTIONS (3)
  - ATAXIA [None]
  - DRUG INTERACTION [None]
  - POISONING [None]
